FAERS Safety Report 4325760-X (Version None)
Quarter: 2004Q1

REPORT INFORMATION
  Report Type: 
  Country: None (occurrence: None)
  Receive Date: 20040324
  Receipt Date: 20040310
  Transmission Date: 20041129
  Serious: Yes (Other)
  Sender: FDA-Public Use
  Company Number: EWC040338417

PATIENT
  Age: 56 Year
  Sex: Female

DRUGS (1)
  1. RALOXIFENE HCL [Suspect]
     Dosage: 60 MG/1 DAY

REACTIONS (3)
  - DERMATITIS CONTACT [None]
  - LIP SLOUGHING [None]
  - SKIN DESQUAMATION [None]
